FAERS Safety Report 6896816-2 (Version None)
Quarter: 2010Q3

REPORT INFORMATION
  Report Type: 
  Country: None (occurrence: None)
  Receive Date: 20100729
  Receipt Date: 20100712
  Transmission Date: 20110219
  Serious: Yes (Congenital Anomaly)
  Sender: FDA-Public Use
  Company Number: APP201000596

PATIENT
  Age: 2 Month
  Sex: Male

DRUGS (1)
  1. VALPROATE SODIUM [Suspect]

REACTIONS (13)
  - CAESAREAN SECTION [None]
  - CLEFT PALATE [None]
  - CONGENITAL INGUINAL HERNIA [None]
  - FAILURE TO THRIVE [None]
  - FOETAL ANTICONVULSANT SYNDROME [None]
  - FOETAL DISTRESS SYNDROME [None]
  - HAND DEFORMITY [None]
  - MATERNAL DRUGS AFFECTING FOETUS [None]
  - NEONATAL RESPIRATORY DISTRESS SYNDROME [None]
  - PERSISTENT LEFT SUPERIOR VENA CAVA [None]
  - PULMONARY HYPERTENSION [None]
  - REGURGITATION [None]
  - SKIN DISORDER [None]
